FAERS Safety Report 8786395 (Version 2)
Quarter: 2013Q4

REPORT INFORMATION
  Report Type: Report from Study
  Country: JP (occurrence: JP)
  Receive Date: 20120914
  Receipt Date: 20131108
  Transmission Date: 20140711
  Serious: Yes (Hospitalization)
  Sender: FDA-Public Use
  Company Number: JP-009507513-2012SP020529

PATIENT
  Age: 62 Year
  Sex: Male
  Weight: 63 kg

DRUGS (14)
  1. PEGINTERFERON ALFA-2B [Suspect]
     Indication: HEPATITIS C
     Dosage: 1.5 MICROGRAM PER KILOGRAM, QW
     Route: 058
     Dates: start: 20120217, end: 20120615
  2. REBETOL [Suspect]
     Indication: HEPATITIS C
     Dosage: 600 MG, QD
     Route: 048
     Dates: start: 20120217, end: 20120312
  3. REBETOL [Suspect]
     Dosage: 200 MG, QD
     Route: 048
     Dates: start: 20120313, end: 20120419
  4. REBETOL [Suspect]
     Dosage: 400 MG, QD
     Route: 048
     Dates: start: 20120420, end: 20120615
  5. TELAVIC [Suspect]
     Indication: HEPATITIS C
     Dosage: 2250 MG, QD
     Route: 048
     Dates: start: 20120217, end: 20120305
  6. TELAVIC [Suspect]
     Dosage: 1500 MG, QD
     Route: 048
     Dates: start: 20120306, end: 20120312
  7. TELAVIC [Suspect]
     Dosage: 1000 MG, QD
     Route: 048
     Dates: start: 20120313, end: 20120501
  8. TELAVIC [Suspect]
     Dosage: 1500 MG, QD
     Route: 048
     Dates: start: 20120502, end: 20120609
  9. DICLOFENAC [Concomitant]
     Indication: PYREXIA
     Dosage: 25 MG, QD
     Route: 054
     Dates: start: 20120217
  10. AMYLASE (+) CELLULASE (+) DIGESTIVE ENZYMES (+) MOLSIN (+) PANCREATIN [Concomitant]
     Indication: DYSPEPSIA
     Dosage: 3 DF, QD
     Route: 048
     Dates: start: 20120219
  11. PARIET [Concomitant]
     Indication: DYSPEPSIA
     Dosage: FORMULATION PROVIDED AS ^POR^ ( DETALIS UNSPECIFIED)
     Route: 048
     Dates: start: 20120219
  12. VEEN 3G [Concomitant]
     Indication: PRODUCT USED FOR UNKNOWN INDICATION
     Dosage: MAINTENANCE MEDIUM WITH ACETIC ACID (WITH GLUCOSE)
     Route: 042
     Dates: start: 20120305, end: 20120307
  13. PONTAL [Concomitant]
     Indication: PYREXIA
     Dosage: 250 MG, PRN
     Route: 048
     Dates: start: 20120406
  14. PONTAL [Concomitant]
     Indication: PROPHYLAXIS

REACTIONS (2)
  - Vomiting [Recovered/Resolved]
  - Nausea [Recovered/Resolved]
